FAERS Safety Report 18497988 (Version 1)
Quarter: 2020Q4

REPORT INFORMATION
  Report Type: Spontaneous
  Country: ES (occurrence: ES)
  Receive Date: 20201112
  Receipt Date: 20201112
  Transmission Date: 20210114
  Serious: Yes (Disabling, Other)
  Sender: FDA-Public Use
  Company Number: ES-MYLANLABS-2020M1093648

PATIENT
  Age: 39 Year
  Sex: Female
  Weight: 72 kg

DRUGS (3)
  1. YURELAX 10 MG C?PSULAS DURAS [Suspect]
     Active Substance: CYCLOBENZAPRINE HYDROCHLORIDE
     Indication: HYPOTONIA
     Dosage: I TOOK ONLY ONE TABLET-CAPSULE, I WAS PRESCRIBED 2 AT NIGHT AND 2 IN THE MORNING FOR ONLY 3 DAYS
     Route: 048
     Dates: start: 20200929, end: 20200929
  2. YURELAX 10 MG C?PSULAS DURAS [Suspect]
     Active Substance: CYCLOBENZAPRINE HYDROCHLORIDE
     Indication: ARTHRALGIA
  3. METAMIZOL                          /06276701/ [Concomitant]
     Active Substance: METAMIZOLE
     Dosage: UNK
     Dates: start: 20200929, end: 20200929

REACTIONS (7)
  - Slow speech [Recovered/Resolved]
  - Dry mouth [Recovering/Resolving]
  - Dizziness [Recovered/Resolved]
  - Hyperhidrosis [Recovering/Resolving]
  - Tachycardia [Recovering/Resolving]
  - Tremor [Recovering/Resolving]
  - Vision blurred [Recovering/Resolving]

NARRATIVE: CASE EVENT DATE: 20200929
